FAERS Safety Report 5042936-7 (Version None)
Quarter: 2006Q3

REPORT INFORMATION
  Report Type: 
  Country: None (occurrence: None)
  Receive Date: 20060705
  Receipt Date: 20060607
  Transmission Date: 20061208
  Serious: Yes (Other)
  Sender: FDA-Public Use
  Company Number: US-BRISTOL-MYERS SQUIBB COMPANY-13404330

PATIENT
  Age: 90 Year
  Sex: Female

DRUGS (8)
  1. KENALOG [Suspect]
     Indication: MACULAR DEGENERATION
     Route: 031
     Dates: start: 20060519, end: 20060519
  2. TOPROL-XL [Concomitant]
  3. IMDUR [Concomitant]
  4. LIPITOR [Concomitant]
  5. CARDIZEM [Concomitant]
  6. ACIPHEX [Concomitant]
  7. PLAVIX [Concomitant]
  8. ASPIRIN [Concomitant]

REACTIONS (3)
  - BLINDNESS [None]
  - GLAUCOMA [None]
  - INFLAMMATION [None]
